FAERS Safety Report 8609875-3 (Version None)
Quarter: 2012Q3

REPORT INFORMATION
  Report Type: 
  Country: None (occurrence: None)
  Receive Date: 20120821
  Receipt Date: 20120810
  Transmission Date: 20120928
  Serious: Yes (Hospitalization, Other)
  Sender: FDA-Public Use
  Company Number: US-ROCHE-1099662

PATIENT
  Sex: Female
  Weight: 8.8 kg

DRUGS (7)
  1. ZELBORAF [Suspect]
     Indication: MALIGNANT MELANOMA
     Route: 048
     Dates: start: 20111012
  2. ZELBORAF [Suspect]
     Dates: start: 20111103
  3. ZELBORAF [Suspect]
     Dates: start: 20120510
  4. BACTROBAN [Concomitant]
     Indication: RASH
     Dosage: 1 APPLICATION
     Route: 061
     Dates: start: 20120202
  5. HYDROCORTISONE [Concomitant]
     Indication: RASH
     Dosage: 1 APPLICATION
     Route: 061
     Dates: start: 20120302
  6. ZELBORAF [Suspect]
     Dosage: 120 MG IN MORNING AND 240 MG IN EVENING
     Dates: start: 20111207
  7. PREVACID [Concomitant]
     Indication: PROPHYLAXIS
     Route: 048
     Dates: start: 20120804

REACTIONS (7)
  - DIARRHOEA [None]
  - BLOOD CREATININE INCREASED [None]
  - BRAIN OEDEMA [None]
  - SOMNOLENCE [None]
  - PHOTOSENSITIVITY REACTION [None]
  - FATIGUE [None]
  - DERMATITIS DIAPER [None]
